FAERS Safety Report 9742691 (Version 1)
Quarter: 2013Q4

REPORT INFORMATION
  Report Type: Spontaneous
  Country: US (occurrence: US)
  Receive Date: 20131210
  Receipt Date: 20131210
  Transmission Date: 20140711
  Serious: No
  Sender: FDA-Public Use
  Company Number: US-GILEAD-2009-0025657

PATIENT
  Age: 62 Year
  Sex: Female

DRUGS (18)
  1. LETAIRIS [Suspect]
     Indication: PULMONARY ARTERIAL HYPERTENSION
     Route: 048
     Dates: start: 20090117
  2. LASIX [Concomitant]
  3. LISINOPRIL [Concomitant]
  4. REVATIO [Concomitant]
  5. COZAAR [Concomitant]
  6. DILTIAZEM [Concomitant]
  7. METOLAZONE [Concomitant]
  8. CLONIDINE [Concomitant]
  9. NEXIUM [Concomitant]
  10. XANAX [Concomitant]
  11. POTASSIUM CHLORIDE [Concomitant]
  12. HYDRALAZINE [Concomitant]
  13. ASPIRIN [Concomitant]
  14. CENTRUM SILVER [Concomitant]
  15. REFRESH [Concomitant]
  16. TYLENOL [Concomitant]
  17. ZPAK [Concomitant]
  18. PROMETHAZINE DM [Concomitant]

REACTIONS (1)
  - Blood count abnormal [Not Recovered/Not Resolved]
